FAERS Safety Report 4826726-3 (Version None)
Quarter: 2005Q4

REPORT INFORMATION
  Report Type: 
  Country: None (occurrence: None)
  Receive Date: 20051110
  Receipt Date: 20051110
  Transmission Date: 20060501
  Serious: Yes (Hospitalization)
  Sender: FDA-Public Use
  Company Number: None

PATIENT
  Sex: Female
  Weight: 97 kg

DRUGS (10)
  1. GEFITINIB 750 MG TABS, ASTRAZENECA [Suspect]
     Indication: GLIOBLASTOMA MULTIFORME
     Dosage: 750 MG PO QD
     Route: 048
     Dates: start: 20040817
  2. RAPAMUNE [Suspect]
     Indication: GLIOBLASTOMA MULTIFORME
     Dosage: 1 MG PO , M-W-F
     Route: 048
     Dates: start: 20040817
  3. AVALIDE [Concomitant]
  4. DECADRON [Concomitant]
  5. KEPPRA [Concomitant]
  6. PEPCID [Concomitant]
  7. LOVONOX [Concomitant]
  8. MAGIC MOUTHWASH [Concomitant]
  9. PHENERGAN [Concomitant]
  10. ZOFRAN [Concomitant]

REACTIONS (6)
  - ASTHENIA [None]
  - DEHYDRATION [None]
  - DIARRHOEA [None]
  - ESCHERICHIA INFECTION [None]
  - NAUSEA [None]
  - ORAL INTAKE REDUCED [None]
